FAERS Safety Report 12134755 (Version 1)
Quarter: 2016Q1

REPORT INFORMATION
  Report Type: Spontaneous
  Country: DE (occurrence: DE)
  Receive Date: 20160301
  Receipt Date: 20160301
  Transmission Date: 20160526
  Serious: Yes (Other)
  Sender: FDA-Public Use
  Company Number: DE-TEVA-637655GER

PATIENT
  Sex: Female

DRUGS (1)
  1. SIMVASTATIN-RATIOPHARM 40MG - 20MG [Suspect]
     Active Substance: SIMVASTATIN
     Route: 048

REACTIONS (30)
  - Constipation [Unknown]
  - Anal fissure [Unknown]
  - Myalgia [Unknown]
  - Sensation of foreign body [Unknown]
  - Eructation [Unknown]
  - Headache [Unknown]
  - Pain [Unknown]
  - Muscular weakness [Unknown]
  - Amnesia [Unknown]
  - Swelling face [Unknown]
  - Dry eye [Unknown]
  - Alopecia [Unknown]
  - Dizziness [Unknown]
  - Sleep apnoea syndrome [Unknown]
  - Weight increased [Unknown]
  - Dyspnoea [Unknown]
  - Depression [Unknown]
  - Abdominal pain upper [Unknown]
  - Hypoaesthesia [Unknown]
  - Apathy [Unknown]
  - Cough [Unknown]
  - Inflammation [Unknown]
  - Paraesthesia [Unknown]
  - Oedema peripheral [Unknown]
  - Blood urine present [Unknown]
  - Visual impairment [Unknown]
  - Malaise [Unknown]
  - Pruritus [Unknown]
  - Dyspepsia [Unknown]
  - Swelling [Unknown]
